FAERS Safety Report 15110559 (Version 1)
Quarter: 2018Q3

REPORT INFORMATION
  Report Type: Spontaneous
  Country: GR (occurrence: GR)
  Receive Date: 20180705
  Receipt Date: 20180705
  Transmission Date: 20181010
  Serious: Yes (Other)
  Sender: FDA-Public Use
  Company Number: GR-PFIZER INC-2018267098

PATIENT
  Age: 20 Year
  Weight: 100 kg

DRUGS (4)
  1. LINEZOLID. [Suspect]
     Active Substance: LINEZOLID
     Indication: ENTEROCOCCAL INFECTION
     Dosage: 600 MG, 2X/DAY (1 DOSE EVERY 12 HOURS)
     Route: 042
     Dates: start: 20130808, end: 20130917
  2. LINEZOLID. [Suspect]
     Active Substance: LINEZOLID
     Indication: BRAIN ABSCESS
  3. MEROPENEM. [Concomitant]
     Active Substance: MEROPENEM
     Indication: ENTEROCOCCAL INFECTION
     Dosage: 2 G, (1 DOSE EVERY 8 HOURS)
     Route: 042
     Dates: start: 20130808, end: 20130917
  4. MEROPENEM. [Concomitant]
     Active Substance: MEROPENEM
     Indication: BRAIN ABSCESS

REACTIONS (1)
  - Trichoglossia [Recovered/Resolved]

NARRATIVE: CASE EVENT DATE: 20130908
